FAERS Safety Report 6550520-9 (Version None)
Quarter: 2010Q1

REPORT INFORMATION
  Report Type: 
  Country: None (occurrence: None)
  Receive Date: 20100125
  Receipt Date: 20100119
  Transmission Date: 20100710
  Serious: Yes (Hospitalization)
  Sender: FDA-Public Use
  Company Number: B0624342A

PATIENT
  Sex: Female

DRUGS (2)
  1. AUGMENTIN [Suspect]
     Indication: BRONCHITIS
     Dosage: 1UNIT TWICE PER DAY
     Route: 048
     Dates: start: 20091128, end: 20091206
  2. TAHOR [Suspect]
     Dosage: 1UNIT PER DAY
     Route: 048
     Dates: start: 20080101, end: 20091211

REACTIONS (4)
  - ALPHA 2 GLOBULIN INCREASED [None]
  - CONDITION AGGRAVATED [None]
  - PRURITUS [None]
  - URTICARIA [None]
